FAERS Safety Report 6541577-X (Version None)
Quarter: 2010Q1

REPORT INFORMATION
  Report Type: 
  Country: None (occurrence: None)
  Receive Date: 20100119
  Receipt Date: 20100111
  Transmission Date: 20100710
  Serious: Yes (Hospitalization, Other)
  Sender: FDA-Public Use
  Company Number: US-ROCHE-678952

PATIENT
  Sex: Male

DRUGS (7)
  1. PEGASYS [Suspect]
     Indication: HEPATITIS C
     Route: 058
     Dates: start: 20091030, end: 20091111
  2. RIBAVIRIN [Suspect]
     Indication: HEPATITIS C
     Route: 048
     Dates: start: 20091030, end: 20091111
  3. PROGRAF [Concomitant]
  4. PREVACID [Concomitant]
  5. BACTRIM [Concomitant]
  6. ZOFRAN [Concomitant]
  7. VALCYTE [Concomitant]

REACTIONS (6)
  - INFLUENZA LIKE ILLNESS [None]
  - LEUKOPENIA [None]
  - NEPHROLITHIASIS [None]
  - POLYURIA [None]
  - RENAL FAILURE ACUTE [None]
  - TRANSFUSION [None]
